FAERS Safety Report 6392360-X (Version None)
Quarter: 2009Q4

REPORT INFORMATION
  Report Type: 
  Country: None (occurrence: None)
  Receive Date: 20091007
  Receipt Date: 20091002
  Transmission Date: 20100525
  Serious: Yes (Death)
  Sender: FDA-Public Use
  Company Number: PHHY2009MX42792

PATIENT
  Sex: Female

DRUGS (3)
  1. DIOVAN HCT [Suspect]
     Indication: HYPERTENSION
     Dosage: 1 TABLET (80/12.5 MG)/DAY
     Route: 048
     Dates: start: 20040301
  2. INSULIN [Concomitant]
     Indication: DIABETES MELLITUS
  3. THYROID THERAPY [Concomitant]

REACTIONS (1)
  - LIVER DISORDER [None]
